FAERS Safety Report 4722914-5 (Version None)
Quarter: 2005Q3

REPORT INFORMATION
  Report Type: 
  Country: None (occurrence: None)
  Receive Date: 20050722
  Receipt Date: 20050629
  Transmission Date: 20060218
  Serious: Yes (Hospitalization)
  Sender: FDA-Public Use
  Company Number: DE-ABBOTT-05P-062-0304693-00

PATIENT
  Sex: Male
  Weight: 63 kg

DRUGS (4)
  1. HUMIRA [Suspect]
     Indication: RHEUMATOID ARTHRITIS
     Route: 058
     Dates: start: 20050302
  2. METHOTREXATE SODIUM [Concomitant]
     Indication: RHEUMATOID ARTHRITIS
     Route: 058
     Dates: start: 20041102
  3. TRAMADOL HCL [Concomitant]
     Indication: DIABETIC NEUROPATHY
     Route: 048
  4. PREDNISOLONE [Concomitant]
     Indication: RHEUMATOID ARTHRITIS
     Route: 048
     Dates: start: 19990101

REACTIONS (13)
  - ARTHROPATHY [None]
  - C-REACTIVE PROTEIN INCREASED [None]
  - INTERMITTENT CLAUDICATION [None]
  - MUSCLE ATROPHY [None]
  - MUSCULAR WEAKNESS [None]
  - MYALGIA [None]
  - NIGHT SWEATS [None]
  - PLASMACYTOMA [None]
  - POLYNEUROPATHY [None]
  - PYREXIA [None]
  - SKIN BACTERIAL INFECTION [None]
  - STRESS [None]
  - WEIGHT DECREASED [None]
